FAERS Safety Report 5130051-3 (Version None)
Quarter: 2006Q4

REPORT INFORMATION
  Report Type: 
  Country: None (occurrence: None)
  Receive Date: 20061013
  Receipt Date: 20060926
  Transmission Date: 20070319
  Serious: Yes (Other)
  Sender: FDA-Public Use
  Company Number: GB200609006600

PATIENT
  Age: 62 Year
  Sex: Female
  Weight: 78.1 kg

DRUGS (6)
  1. CYMBALTA [Suspect]
     Indication: DEPRESSION
     Dosage: 60 MG, ORAL
     Route: 048
     Dates: start: 20060821, end: 20060905
  2. ASPIRIN [Concomitant]
  3. ATORVASTATIN CALCIUM [Concomitant]
  4. CLIMAGEST (ESTRADIOL VALERATE, NORETHISTERONE) [Concomitant]
  5. DOSULEPIN (DOSULEPIN) [Concomitant]
  6. VENLAFAXINE HCL [Concomitant]

REACTIONS (3)
  - AGITATION [None]
  - EXTRAPYRAMIDAL DISORDER [None]
  - RESTLESSNESS [None]
